FAERS Safety Report 9240432 (Version 1)
Quarter: 2013Q1

REPORT INFORMATION
  Report Type: Spontaneous
  Country: US (occurrence: None)
  Receive Date: 20121107
  Receipt Date: 20121107
  Transmission Date: 20140127
  Serious: No
  Sender: FDA-Public Use
  Company Number: 2012HGS-003852

PATIENT
  Age: 45 Year
  Sex: Female
  Weight: 70.31 kg

DRUGS (4)
  1. BENLYSTA [Suspect]
     Indication: SYSTEMIC LUPUS ERYTHEMATOSUS
     Dosage: 1 IN 28 D, INTRAVENOUS DRIP
     Route: 041
     Dates: start: 20120518
  2. PLAQUENIL (HYDROXYCHLOROQUINE SULFATE) (HYDROXYCHLOROQUINE SULFATE) [Concomitant]
  3. IBUPROFEN (IBUPROFEN) (IBUPROFEN) [Concomitant]
  4. NAPROXEN (NAPROXEN) (NAPROXEN) [Concomitant]

REACTIONS (3)
  - Arthralgia [None]
  - Musculoskeletal stiffness [None]
  - Initial insomnia [None]
